FAERS Safety Report 12318759 (Version 1)
Quarter: 2016Q2

REPORT INFORMATION
  Report Type: Spontaneous
  Country: US (occurrence: US)
  Receive Date: 20160429
  Receipt Date: 20160429
  Transmission Date: 20160815
  Serious: No
  Sender: FDA-Public Use
  Company Number: GXBR2015US001004

PATIENT
  Sex: Male

DRUGS (2)
  1. LORAZEPAM ACTAVIS 1MG [Suspect]
     Active Substance: LORAZEPAM
     Indication: ANXIETY
  2. LORAZEPAM ACTAVIS 1MG [Suspect]
     Active Substance: LORAZEPAM
     Indication: PANIC ATTACK
     Dosage: 1 MG, 2-3 TIMES PER DAY
     Route: 048

REACTIONS (11)
  - Panic attack [Recovering/Resolving]
  - Fear [Unknown]
  - Feeling abnormal [Unknown]
  - Palpitations [Unknown]
  - Insomnia [Unknown]
  - Blood pressure increased [Recovering/Resolving]
  - Disturbance in attention [Unknown]
  - Heart rate increased [Unknown]
  - Paraesthesia [Unknown]
  - Hypoaesthesia [Unknown]
  - Anxiety [Recovering/Resolving]

NARRATIVE: CASE EVENT DATE: 20141218
